FAERS Safety Report 23623340 (Version 2)
Quarter: 2024Q2

REPORT INFORMATION
  Report Type: Spontaneous
  Country: US (occurrence: US)
  Receive Date: 20240312
  Receipt Date: 20240424
  Transmission Date: 20240716
  Serious: Yes (Hospitalization, Other)
  Sender: FDA-Public Use
  Company Number: US-BRISTOL-MYERS SQUIBB COMPANY-2024-039407

PATIENT
  Age: 74 Year
  Sex: Female
  Weight: 61.7 kg

DRUGS (49)
  1. ABECMA [Suspect]
     Active Substance: IDECABTAGENE VICLEUCEL
     Indication: Plasma cell myeloma refractory
     Route: 042
     Dates: start: 20240205, end: 20240205
  2. ACETAMINOPHEN [Concomitant]
     Active Substance: ACETAMINOPHEN
     Indication: Product used for unknown indication
     Dosage: ORAL SOLID
     Route: 048
     Dates: start: 20240206, end: 20240206
  3. ACETAMINOPHEN [Concomitant]
     Active Substance: ACETAMINOPHEN
     Dosage: PRN X 12 HR
     Route: 048
     Dates: start: 20240205, end: 20240205
  4. ACYCLOVIR [Concomitant]
     Active Substance: ACYCLOVIR
     Indication: Product used for unknown indication
     Dosage: PRN X 12 HR
     Route: 048
     Dates: start: 20240205
  5. MAALOX PLUS [ALUMINIUM HYDROXIDE;MAGNESIUM HYDROXIDE;SIMETICONE] [Concomitant]
     Indication: Dyspepsia
     Dosage: LIQUID, Q4 HR, PRN
     Route: 048
     Dates: start: 20240205
  6. ALLOPURINOL [Concomitant]
     Active Substance: ALLOPURINOL
     Indication: Product used for unknown indication
     Route: 048
     Dates: start: 20240205
  7. ALTEPLASE [Concomitant]
     Active Substance: ALTEPLASE
     Indication: Product used for unknown indication
     Dosage: PRN
     Route: 042
     Dates: start: 20240205
  8. ASPIRIN [Concomitant]
     Active Substance: ASPIRIN
     Indication: Product used for unknown indication
     Route: 048
     Dates: start: 20240205
  9. CALCIUM\VITAMIN D [Concomitant]
     Active Substance: CALCIUM\VITAMIN D
     Indication: Product used for unknown indication
     Dosage: 500 MG-5 MCG, 200 IU
     Route: 048
     Dates: start: 20240205
  10. CARVEDILOL [Concomitant]
     Active Substance: CARVEDILOL
     Indication: Product used for unknown indication
     Route: 048
     Dates: start: 20240206
  11. CARVEDILOL [Concomitant]
     Active Substance: CARVEDILOL
     Dosage: 6.26= 0.5 TAB
     Route: 048
     Dates: start: 20240205
  12. CIPROFLOXACIN [Concomitant]
     Active Substance: CIPROFLOXACIN
     Indication: Febrile neutropenia
     Route: 048
     Dates: start: 20240205, end: 20240306
  13. DIPHENHYDRAMINE [Concomitant]
     Active Substance: DIPHENHYDRAMINE
     Indication: Product used for unknown indication
     Route: 048
     Dates: start: 20240205
  14. DIPHENHYDRAMINE [Concomitant]
     Active Substance: DIPHENHYDRAMINE
     Route: 042
     Dates: start: 20240205, end: 20240205
  15. FLUCONAZOLE [Concomitant]
     Active Substance: FLUCONAZOLE
     Indication: Product used for unknown indication
     Dosage: 400 MG= 2 TAB
     Route: 048
     Dates: start: 20240205
  16. GUAIFENESIN [Concomitant]
     Active Substance: GUAIFENESIN
     Indication: Cough
     Dosage: PRN
     Route: 048
     Dates: start: 20240206
  17. LEVETIRACETAM [Concomitant]
     Active Substance: LEVETIRACETAM
     Indication: Product used for unknown indication
     Dosage: 500 MG= 1 TAB
     Route: 048
     Dates: start: 20240205
  18. LEVOTHYROXINE [Concomitant]
     Active Substance: LEVOTHYROXINE\LEVOTHYROXINE SODIUM
     Indication: Product used for unknown indication
     Dosage: Q0600
     Route: 048
     Dates: start: 20240206
  19. MAGNESIUM SULFATE [Concomitant]
     Active Substance: MAGNESIUM SULFATE\MAGNESIUM SULFATE HEPTAHYDRATE
     Indication: Product used for unknown indication
     Dosage: OVER 2 HOUR
     Route: 042
     Dates: start: 20240206, end: 20240206
  20. MAGNESIUM SULFATE [Concomitant]
     Active Substance: MAGNESIUM SULFATE\MAGNESIUM SULFATE HEPTAHYDRATE
     Dosage: OVER 2 HOUR
     Route: 042
     Dates: start: 20240205, end: 20240205
  21. SODIUM CHLORIDE [Concomitant]
     Active Substance: SODIUM CHLORIDE
     Indication: Product used for unknown indication
     Dosage: 75 ML/HR OVER 13.3 HOUR
     Route: 042
     Dates: start: 20240206
  22. SODIUM CHLORIDE [Concomitant]
     Active Substance: SODIUM CHLORIDE
     Dosage: PRN
     Route: 048
     Dates: start: 20240205
  23. ONDANSETRON [Concomitant]
     Active Substance: ONDANSETRON
     Indication: Nausea
     Dosage: 16 MG= 2 TAB, PRN
     Route: 048
     Dates: start: 20240205
  24. ONDANSETRON [Concomitant]
     Active Substance: ONDANSETRON
     Dosage: 16 MG= 2 TAB, PRN
     Route: 048
     Dates: start: 20240201, end: 20240201
  25. ONDANSETRON [Concomitant]
     Active Substance: ONDANSETRON
     Dosage: 16 MG= 2 TAB, PRN
     Route: 048
     Dates: start: 20240202, end: 20240202
  26. ONDANSETRON [Concomitant]
     Active Substance: ONDANSETRON
     Dosage: 8 MG= 1 TAB, PRN
     Route: 048
     Dates: start: 20240205
  27. POTASSIUM CHLORIDE [Concomitant]
     Active Substance: POTASSIUM CHLORIDE
     Indication: Product used for unknown indication
     Dosage: 40 MEQ+ 2 TAB
     Route: 048
     Dates: start: 20240206, end: 20240206
  28. POTASSIUM CHLORIDE [Concomitant]
     Active Substance: POTASSIUM CHLORIDE
     Dosage: 40 MEQ+ 2 TAB
     Route: 048
     Dates: start: 20240205, end: 20240205
  29. K PHOS NEUTRAL [Concomitant]
     Active Substance: POTASSIUM PHOSPHATE, MONOBASIC\SODIUM PHOSPHATE, DIBASIC, ANHYDROUS\SODIUM PHOSPHATE, MONOBASIC, MON
     Indication: Product used for unknown indication
     Dosage: 1 EA
     Route: 048
     Dates: start: 20240206, end: 20240206
  30. K PHOS NEUTRAL [Concomitant]
     Active Substance: POTASSIUM PHOSPHATE, MONOBASIC\SODIUM PHOSPHATE, DIBASIC, ANHYDROUS\SODIUM PHOSPHATE, MONOBASIC, MON
     Route: 048
     Dates: start: 20240205, end: 20240205
  31. PREGABALIN [Concomitant]
     Active Substance: PREGABALIN
     Indication: Product used for unknown indication
     Dosage: 150 MG= 2 TAB
     Route: 048
     Dates: start: 20240205
  32. PROCHLORPERAZINE [Concomitant]
     Active Substance: PROCHLORPERAZINE
     Indication: Nausea
     Dosage: 10 MG= 1 TAB- 2ND CHOICE
     Route: 048
     Dates: start: 20240205
  33. CYCLOPHOSPHAMIDE [Concomitant]
     Active Substance: CYCLOPHOSPHAMIDE
     Indication: Product used for unknown indication
     Dosage: 500 MG= 25 ML
     Route: 042
     Dates: start: 20240201, end: 20240201
  34. CYCLOPHOSPHAMIDE [Concomitant]
     Active Substance: CYCLOPHOSPHAMIDE
     Dosage: 500 MG= 25 ML
     Route: 042
     Dates: start: 20240202, end: 20240202
  35. CYCLOPHOSPHAMIDE [Concomitant]
     Active Substance: CYCLOPHOSPHAMIDE
     Dosage: 500 MG= 25 ML
     Route: 042
     Dates: start: 20240131, end: 20240131
  36. FLUDARABINE [Concomitant]
     Active Substance: FLUDARABINE PHOSPHATE
     Indication: Product used for unknown indication
     Dosage: 50 MG= 2 ML
     Route: 042
     Dates: start: 20240131, end: 20240131
  37. FLUDARABINE [Concomitant]
     Active Substance: FLUDARABINE PHOSPHATE
     Dosage: 50 MG= 2 ML
     Route: 042
     Dates: start: 20240201, end: 20240201
  38. FLUDARABINE [Concomitant]
     Active Substance: FLUDARABINE PHOSPHATE
     Dosage: 50 MG= 2 ML
     Route: 042
     Dates: start: 20240202, end: 20240202
  39. OLANZAPINE [Concomitant]
     Active Substance: OLANZAPINE
     Indication: Product used for unknown indication
     Dosage: 5 MG= 1 TAB
     Route: 048
     Dates: start: 20240201, end: 20240201
  40. OLANZAPINE [Concomitant]
     Active Substance: OLANZAPINE
     Dosage: 5 MG= 1 TAB
     Route: 048
     Dates: start: 20240202, end: 20240202
  41. OLANZAPINE [Concomitant]
     Active Substance: OLANZAPINE
     Dosage: 5 MG= 1 TAB
     Route: 048
     Dates: start: 20240131, end: 20240131
  42. SODIUM CHLORIDE [Concomitant]
     Active Substance: SODIUM CHLORIDE
     Indication: Product used for unknown indication
     Dosage: 0.9%
     Route: 042
     Dates: start: 20240201, end: 20240201
  43. SODIUM CHLORIDE [Concomitant]
     Active Substance: SODIUM CHLORIDE
     Dosage: 0.9%
     Route: 042
     Dates: start: 20240202, end: 20240202
  44. SODIUM CHLORIDE [Concomitant]
     Active Substance: SODIUM CHLORIDE
     Dosage: 0.9%
     Route: 042
     Dates: start: 20240131, end: 20240131
  45. SODIUM CHLORIDE [Concomitant]
     Active Substance: SODIUM CHLORIDE
     Dosage: 0.9%
     Route: 042
     Dates: start: 20240131, end: 20240131
  46. SODIUM CHLORIDE [Concomitant]
     Active Substance: SODIUM CHLORIDE
     Dosage: 0.9%
     Route: 042
     Dates: start: 20240201, end: 20240201
  47. SODIUM CHLORIDE [Concomitant]
     Active Substance: SODIUM CHLORIDE
     Dosage: 0.9%
     Route: 042
     Dates: start: 20240202, end: 20240202
  48. RAMIPRIL [Concomitant]
     Active Substance: RAMIPRIL
     Indication: Product used for unknown indication
     Route: 048
  49. BACTRIM DS [Concomitant]
     Active Substance: SULFAMETHOXAZOLE\TRIMETHOPRIM
     Indication: Product used for unknown indication
     Dosage: 800 MG-160 MG
     Route: 048

REACTIONS (1)
  - Cytokine release syndrome [Recovered/Resolved]

NARRATIVE: CASE EVENT DATE: 20240206
